FAERS Safety Report 20039675 (Version 7)
Quarter: 2022Q3

REPORT INFORMATION
  Report Type: Spontaneous
  Country: US (occurrence: US)
  Receive Date: 20211106
  Receipt Date: 20220721
  Transmission Date: 20221026
  Serious: Yes (Death, Other)
  Sender: FDA-Public Use
  Company Number: US-SA-SAC20211101000365

PATIENT
  Age: 68 Year
  Sex: Female

DRUGS (3)
  1. KEVZARA [Suspect]
     Active Substance: SARILUMAB
     Indication: Rheumatoid arthritis
     Dosage: 200 MG, QOW
     Route: 058
     Dates: start: 202110
  2. KEVZARA [Suspect]
     Active Substance: SARILUMAB
     Indication: Osteoarthritis
  3. KEVZARA [Suspect]
     Active Substance: SARILUMAB
     Indication: Osteoporotic fracture

REACTIONS (5)
  - Death [Fatal]
  - Condition aggravated [Unknown]
  - Illness [Unknown]
  - Bronchitis [Unknown]
  - Product use in unapproved indication [Unknown]
